FAERS Safety Report 17654322 (Version 2)
Quarter: 2020Q2

REPORT INFORMATION
  Report Type: Spontaneous
  Country: FR (occurrence: FR)
  Receive Date: 20200410
  Receipt Date: 20200413
  Transmission Date: 20200713
  Serious: Yes (Life-Threatening, Other)
  Sender: FDA-Public Use
  Company Number: FR-TEVA-2020-FR-1220589

PATIENT
  Age: 66 Year
  Sex: Male
  Weight: 76 kg

DRUGS (18)
  1. VORICONAZOLE. [Suspect]
     Active Substance: VORICONAZOLE
     Dosage: 16 MG/KG DAILY; 8 MG/KG, Q12H
     Route: 042
     Dates: start: 20180719
  2. MUROMONAB-CD3 [Concomitant]
     Active Substance: MUROMONAB-CD3
     Indication: B-CELL TYPE ACUTE LEUKAEMIA
     Route: 065
  3. VORICONAZOLE. [Suspect]
     Active Substance: VORICONAZOLE
     Dosage: 12 MG/KG, Q12H
     Route: 042
     Dates: start: 20180718
  4. AMBISOME [Suspect]
     Active Substance: AMPHOTERICIN B
     Indication: FUNGAEMIA
  5. CASPOFUNGIN ACETATE. [Concomitant]
     Active Substance: CASPOFUNGIN ACETATE
     Indication: FEBRILE NEUTROPENIA
  6. BLINATUMOMAB [Concomitant]
     Active Substance: BLINATUMOMAB
     Indication: B PRECURSOR TYPE ACUTE LEUKAEMIA
     Route: 065
     Dates: start: 201806, end: 20180718
  7. VORICONAZOLE. [Suspect]
     Active Substance: VORICONAZOLE
     Dosage: 2 MG/KG Q12H
     Route: 065
  8. VORICONAZOLE. [Suspect]
     Active Substance: VORICONAZOLE
     Dosage: 6 MG/KG EVERY 12 HRS FOR 1 DAY AND THEN, 4 MG/KG EVERY 12 HRS) AND REDUCED TO 2 MG/KG
     Route: 042
  9. CASPOFUNGIN ACETATE. [Concomitant]
     Active Substance: CASPOFUNGIN ACETATE
     Indication: FUNGAL INFECTION
  10. BLINATUMOMAB [Concomitant]
     Active Substance: BLINATUMOMAB
     Indication: ACUTE LYMPHOCYTIC LEUKAEMIA
  11. VORICONAZOLE. [Suspect]
     Active Substance: VORICONAZOLE
     Indication: TRICHOSPORON INFECTION
     Dosage: 4 MG/KG, Q12H
     Route: 042
     Dates: start: 20180719
  12. VORICONAZOLE. [Suspect]
     Active Substance: VORICONAZOLE
     Dosage: 6 MG/KG Q12H
     Route: 042
     Dates: start: 20180718
  13. VORICONAZOLE. [Suspect]
     Active Substance: VORICONAZOLE
     Dosage: 2 MG/KG, 2X/DAY (DECREASED)
     Route: 042
     Dates: start: 20180726, end: 20180801
  14. AMBISOME [Suspect]
     Active Substance: AMPHOTERICIN B
     Indication: TRICHOSPORON INFECTION
     Dosage: 3 MG/KG, DAILY (LIPOSOMAL FORM)
     Route: 042
     Dates: start: 20180718, end: 20180828
  15. CASPOFUNGIN ACETATE. [Concomitant]
     Active Substance: CASPOFUNGIN ACETATE
     Indication: EVIDENCE BASED TREATMENT
  16. BLINATUMOMAB [Concomitant]
     Active Substance: BLINATUMOMAB
     Indication: PANCYTOPENIA
     Route: 065
  17. BLINATUMOMAB [Concomitant]
     Active Substance: BLINATUMOMAB
     Indication: B-CELL TYPE ACUTE LEUKAEMIA
  18. VORICONAZOLE. [Suspect]
     Active Substance: VORICONAZOLE
     Dosage: 2 MG/KG, Q12H
     Route: 042
     Dates: start: 20180726, end: 20180801

REACTIONS (11)
  - Neurotoxicity [Unknown]
  - Trichosporon infection [Recovering/Resolving]
  - Leukopenia [Recovered/Resolved]
  - Fungaemia [Unknown]
  - Product use in unapproved indication [Unknown]
  - Hallucination [Recovered/Resolved]
  - Immunosuppression [Recovered/Resolved]
  - Febrile neutropenia [Recovered/Resolved]
  - Drug level increased [Recovered/Resolved]
  - Neurological symptom [Unknown]
  - White blood cell count increased [Unknown]

NARRATIVE: CASE EVENT DATE: 20180713
